FAERS Safety Report 8260248-5 (Version None)
Quarter: 2012Q2

REPORT INFORMATION
  Report Type: 
  Country: None (occurrence: None)
  Receive Date: 20120404
  Receipt Date: 20120326
  Transmission Date: 20120825
  Serious: No
  Sender: FDA-Public Use
  Company Number: US-PFIZER INC-2012077578

PATIENT
  Sex: Female

DRUGS (1)
  1. GLUCOTROL XL [Suspect]
     Indication: DIABETES MELLITUS
     Dosage: 10 MG, 1X/DAY
     Route: 048

REACTIONS (6)
  - RASH ERYTHEMATOUS [None]
  - OEDEMA [None]
  - RASH PRURITIC [None]
  - ERYTHEMA [None]
  - HYPERSENSITIVITY [None]
  - PAIN OF SKIN [None]
